FAERS Safety Report 5781038-9 (Version None)
Quarter: 2008Q2

REPORT INFORMATION
  Report Type: 
  Country: None (occurrence: None)
  Receive Date: 20080618
  Receipt Date: 20080609
  Transmission Date: 20081010
  Serious: Yes (Other)
  Sender: FDA-Public Use
  Company Number: JPI-P-003894

PATIENT
  Age: 60 Year
  Sex: Female
  Weight: 58.0604 kg

DRUGS (4)
  1. XYREM [Suspect]
     Indication: FIBROMYALGIA
     Dosage: 4.5 GM (4.5 GM, 1 IN 1 D), ORAL, 3.5 GM (3.5 GM, 1 IN 1 D), ORAL,
     Route: 048
     Dates: start: 20080101
  2. XYREM [Suspect]
     Indication: FIBROMYALGIA
     Dosage: 4.5 GM (4.5 GM, 1 IN 1 D), ORAL, 3.5 GM (3.5 GM, 1 IN 1 D), ORAL,
     Route: 048
     Dates: start: 20080101
  3. XYREM [Suspect]
     Indication: FIBROMYALGIA
     Dosage: 4.5 GM (4.5 GM, 1 IN 1 D), ORAL, 3.5 GM (3.5 GM, 1 IN 1 D), ORAL,
     Route: 048
     Dates: start: 20080401
  4. XYREM [Suspect]
     Indication: FIBROMYALGIA
     Dosage: 4.5 GM (4.5 GM, 1 IN 1 D), ORAL, 3.5 GM (3.5 GM, 1 IN 1 D), ORAL,
     Route: 048
     Dates: start: 20080401

REACTIONS (3)
  - DEHYDRATION [None]
  - FOOD POISONING [None]
  - RESPIRATORY TRACT INFECTION VIRAL [None]
